FAERS Safety Report 7161769-9 (Version None)
Quarter: 2010Q4

REPORT INFORMATION
  Report Type: 
  Country: None (occurrence: None)
  Receive Date: 20101201
  Receipt Date: 20101108
  Transmission Date: 20110411
  Serious: Yes (Hospitalization)
  Sender: FDA-Public Use
  Company Number: 2010S1000869

PATIENT
  Age: 57 Year
  Sex: Female
  Weight: 67.6 kg

DRUGS (7)
  1. LIVALO [Suspect]
     Indication: TYPE 2 DIABETES MELLITUS
     Dosage: ; BID; PO, 100 MG; BID; PO, 200 MG; BID; PO
     Route: 048
     Dates: start: 20091029, end: 20100121
  2. LIVALO [Suspect]
     Indication: TYPE 2 DIABETES MELLITUS
     Dosage: ; BID; PO, 100 MG; BID; PO, 200 MG; BID; PO
     Route: 048
     Dates: start: 20100121, end: 20100520
  3. LIVALO [Suspect]
     Indication: TYPE 2 DIABETES MELLITUS
     Dosage: ; BID; PO, 100 MG; BID; PO, 200 MG; BID; PO
     Route: 048
     Dates: start: 20100520, end: 20100906
  4. LIVALO KOWA [Concomitant]
  5. MIGLITOL [Concomitant]
  6. NORVASC [Concomitant]
  7. INFLUENZA HA VACCINE [Concomitant]

REACTIONS (5)
  - CELLS IN URINE [None]
  - RED BLOOD CELLS URINE POSITIVE [None]
  - URINE TRANSITIONAL CELLS PRESENT [None]
  - UTERINE CANCER [None]
  - WHITE BLOOD CELLS URINE POSITIVE [None]
